FAERS Safety Report 5586385-1 (Version None)
Quarter: 2008Q1

REPORT INFORMATION
  Report Type: 
  Country: None (occurrence: None)
  Receive Date: 20080110
  Receipt Date: 20080104
  Transmission Date: 20080703
  Serious: Yes (Death)
  Sender: FDA-Public Use
  Company Number: FR-BAYER-200810311GPV

PATIENT
  Age: 72 Year
  Sex: Male

DRUGS (8)
  1. IZILOX [Suspect]
     Indication: BRONCHITIS
     Route: 048
     Dates: start: 20071203, end: 20071205
  2. ADVIL [Suspect]
     Indication: PYREXIA
     Route: 048
     Dates: start: 20071203, end: 20071205
  3. DOLIPRANE [Suspect]
     Indication: PYREXIA
     Route: 048
     Dates: start: 20071203, end: 20071205
  4. DEROXAT [Suspect]
     Indication: DRUG USE FOR UNKNOWN INDICATION
     Route: 048
  5. LYRICA [Suspect]
     Indication: DRUG USE FOR UNKNOWN INDICATION
     Route: 065
  6. LYSANXIA [Suspect]
     Indication: DRUG USE FOR UNKNOWN INDICATION
     Route: 065
  7. LAROXYL [Suspect]
     Indication: DRUG USE FOR UNKNOWN INDICATION
     Route: 065
  8. AMOXICILLIN [Concomitant]
     Indication: BRONCHITIS
     Route: 065
     Dates: start: 20071129, end: 20071202

REACTIONS (1)
  - SUDDEN DEATH [None]
